FAERS Safety Report 6087108-2 (Version None)
Quarter: 2009Q1

REPORT INFORMATION
  Report Type: 
  Country: None (occurrence: None)
  Receive Date: 20090223
  Receipt Date: 20090213
  Transmission Date: 20090719
  Serious: Yes (Hospitalization, Other)
  Sender: FDA-Public Use
  Company Number: US-ELI_LILLY_AND_COMPANY-US200902003210

PATIENT
  Sex: Female
  Weight: 122.45 kg

DRUGS (13)
  1. BYETTA [Suspect]
     Indication: TYPE 2 DIABETES MELLITUS
     Dosage: 5 UG, 2/D
     Route: 058
     Dates: start: 20080101
  2. METFORMIN                          /00082701/ [Concomitant]
     Indication: TYPE 2 DIABETES MELLITUS
     Dosage: 1000 MG, EACH EVENING
     Route: 048
  3. PRAVASTATIN SODIUM [Concomitant]
     Indication: BLOOD CHOLESTEROL
     Dosage: 80 MG, DAILY (1/D)
     Route: 048
  4. POTASSIUM CHLORIDE [Concomitant]
     Indication: ELECTROLYTE SUBSTITUTION THERAPY
     Dosage: 10 MEQ, DAILY (1/D)
     Route: 048
  5. LISINOPRIL [Concomitant]
     Indication: BLOOD PRESSURE
     Dosage: 20 MG, DAILY (1/D)
     Route: 048
  6. FUROSEMIDE [Concomitant]
     Indication: FLUID RETENTION
     Dosage: 20 MG, 3/W
     Route: 048
  7. KETOCONAZOLE [Concomitant]
     Indication: FUNGAL INFECTION
     Dosage: 200 MG, AS NEEDED
  8. SULFAMETHOXAZOLE AND TRIMETHOPRIM [Concomitant]
     Indication: INFECTION
     Dosage: 500 MG, 2/D
     Route: 048
  9. RANITIDINE HYDROCHLORIDE [Concomitant]
     Dosage: 150 MG, 2/D
     Route: 048
  10. LEVOTHYROXINE SODIUM [Concomitant]
     Indication: THYROID DISORDER
     Dosage: 125 UG, DAILY (1/D)
     Route: 048
  11. SPIRIVA [Concomitant]
     Indication: EMPHYSEMA
     Dosage: 18 UG, DAILY (1/D)
  12. LOVAZA [Concomitant]
     Indication: BLOOD CHOLESTEROL
     Dosage: 2 D/F, DAILY (1/D)
     Route: 048
  13. METOPROLOL TARTRATE [Concomitant]
     Dosage: 50 MG, 2/D
     Route: 048

REACTIONS (1)
  - HEART RATE INCREASED [None]
